FAERS Safety Report 8036972-6 (Version None)
Quarter: 2012Q1

REPORT INFORMATION
  Report Type: 
  Country: None (occurrence: None)
  Receive Date: 20120111
  Receipt Date: 20120109
  Transmission Date: 20120608
  Serious: No
  Sender: FDA-Public Use
  Company Number: US-PFIZER INC-2012006746

PATIENT
  Sex: Male
  Weight: 56.689 kg

DRUGS (2)
  1. LIPITOR [Suspect]
     Indication: ARTERIOSCLEROSIS
     Dosage: 80 MG, 1X/DAY
     Route: 048
  2. LIPITOR [Suspect]
     Dosage: 40 MG, 1X/DAY
     Route: 048

REACTIONS (6)
  - HYPERTENSION [None]
  - ABDOMINAL DISCOMFORT [None]
  - BLOOD CHOLESTEROL ABNORMAL [None]
  - DRUG EFFECT DECREASED [None]
  - BURNING SENSATION [None]
  - HOT FLUSH [None]
